FAERS Safety Report 9260675 (Version 1)
Quarter: 2013Q2

REPORT INFORMATION
  Report Type: Report from Study
  Country: DE (occurrence: DE)
  Receive Date: 20130429
  Receipt Date: 20130429
  Transmission Date: 20140414
  Serious: Yes (Hospitalization)
  Sender: FDA-Public Use
  Company Number: DE-ABBOTT-13P-062-1033909-00

PATIENT
  Age: 45 Year
  Sex: Male
  Weight: 105 kg

DRUGS (4)
  1. HUMIRA [Suspect]
     Indication: CROHN^S DISEASE
     Route: 058
     Dates: start: 20110912, end: 201301
  2. HUMIRA [Suspect]
     Route: 058
     Dates: start: 201302
  3. AZATHIOPRINE [Concomitant]
     Indication: PRODUCT USED FOR UNKNOWN INDICATION
  4. PURI-NETHOL [Concomitant]
     Indication: PRODUCT USED FOR UNKNOWN INDICATION
     Dosage: ABOUT 3 MONTHS
     Dates: start: 2012, end: 2012

REACTIONS (3)
  - Intestinal stenosis [Unknown]
  - Intestinal fistula [Unknown]
  - Abscess intestinal [Unknown]
